FAERS Safety Report 5068839-X (Version None)
Quarter: 2006Q3

REPORT INFORMATION
  Report Type: 
  Country: None (occurrence: None)
  Receive Date: 20060802
  Receipt Date: 20060427
  Transmission Date: 20061208
  Serious: No
  Sender: FDA-Public Use
  Company Number: US-BRISTOL-MYERS SQUIBB COMPANY-13358775

PATIENT
  Age: 72 Year
  Sex: Female
  Weight: 84 kg

DRUGS (6)
  1. COUMADIN [Suspect]
     Indication: ATRIAL FIBRILLATION
     Dosage: CURRENT DOSAGE 75 MG/5 DAYS AND 10 MG DAILY/2 DAYS; PRIOR DOSAGE 7.5 MG/3 DAYS AND 5 MG/4 DAYS
  2. METFORMIN HYDROCHLORIDE [Concomitant]
  3. VERAPAMIL [Concomitant]
  4. BENAZEPRIL HYDROCHLORIDE [Concomitant]
  5. THYROXINE [Concomitant]
  6. LEXAPRO [Concomitant]

REACTIONS (1)
  - INTERNATIONAL NORMALISED RATIO FLUCTUATION [None]
